FAERS Safety Report 6581553-4 (Version None)
Quarter: 2010Q1

REPORT INFORMATION
  Report Type: 
  Country: None (occurrence: None)
  Receive Date: 20100215
  Receipt Date: 20100205
  Transmission Date: 20100710
  Serious: Yes (Other)
  Sender: FDA-Public Use
  Company Number: US-JNJFOC-20091202540

PATIENT
  Sex: Female
  Weight: 60.78 kg

DRUGS (1)
  1. ORTHO-CEPT [Suspect]
     Indication: DRUG USE FOR UNKNOWN INDICATION
     Route: 065

REACTIONS (2)
  - JOINT INJURY [None]
  - THROMBOSIS [None]
